FAERS Safety Report 5368443-X (Version None)
Quarter: 2007Q2

REPORT INFORMATION
  Report Type: 
  Country: None (occurrence: None)
  Receive Date: 20070621
  Receipt Date: 20070621
  Transmission Date: 20071010
  Serious: Yes (Life-Threatening, Hospitalization)
  Sender: FDA-Public Use
  Company Number: None

PATIENT
  Age: 26 Year
  Sex: Male
  Weight: 74.8435 kg

DRUGS (2)
  1. COMBIVIR [Suspect]
     Indication: HIV INFECTION
     Dosage: 150MG 2X DAILY PO
     Route: 048
     Dates: start: 20030521, end: 20031009
  2. VIRAMUNE [Suspect]
     Indication: HIV INFECTION
     Dosage: 200MP 2X DAILY PO
     Route: 048
     Dates: start: 20030820, end: 20031009

REACTIONS (7)
  - NAIL DISORDER [None]
  - NERVE INJURY [None]
  - SCAR [None]
  - SKIN HYPERPIGMENTATION [None]
  - STEVENS-JOHNSON SYNDROME [None]
  - TONGUE DISORDER [None]
  - TOOTH DECALCIFICATION [None]
